FAERS Safety Report 7337711-4 (Version None)
Quarter: 2011Q1

REPORT INFORMATION
  Report Type: 
  Country: None (occurrence: None)
  Receive Date: 20110303
  Receipt Date: 20110303
  Transmission Date: 20110831
  Serious: Yes (Other)
  Sender: FDA-Public Use
  Company Number: None

PATIENT
  Age: 44 Year
  Sex: Female
  Weight: 68.0396 kg

DRUGS (1)
  1. CAFFEINE CAPLETS 200MG CVS PHARMACY [Suspect]
     Dosage: 2 CAPLET 1 TIME ORAL
     Route: 048
     Dates: start: 20110201, end: 20110222

REACTIONS (3)
  - HEART RATE INCREASED [None]
  - INCREASED APPETITE [None]
  - PALPITATIONS [None]
